FAERS Safety Report 9357432 (Version 2)
Quarter: 2013Q4

REPORT INFORMATION
  Report Type: Spontaneous
  Country: US (occurrence: None)
  Receive Date: 20130617
  Receipt Date: 20131028
  Transmission Date: 20140711
  Serious: Yes (Death)
  Sender: FDA-Public Use
  Company Number: 2013US001726

PATIENT
  Age: 58 Year
  Sex: Male

DRUGS (1)
  1. ICLUSIG [Suspect]
     Indication: CHRONIC MYELOID LEUKAEMIA
     Route: 048
     Dates: start: 20130118

REACTIONS (4)
  - Drug ineffective [None]
  - Chronic myeloid leukaemia [None]
  - Malignant neoplasm progression [None]
  - Disease progression [None]
